FAERS Safety Report 7614608 (Version 10)
Quarter: 2019Q3

REPORT INFORMATION
  Report Type: Spontaneous
  Country: US (occurrence: US)
  Receive Date: 20101001
  Receipt Date: 20190828
  Transmission Date: 20191005
  Serious: Yes (Hospitalization, Other)
  Sender: FDA-Public Use
  Company Number: US-009507513-1009USA05574

PATIENT
  Sex: Female
  Weight: 43.55 kg

DRUGS (7)
  1. FOSAMAX PLUS D [Suspect]
     Active Substance: ALENDRONATE SODIUM\CHOLECALCIFEROL
     Indication: OSTEOPOROSIS
     Dosage: UNK
     Route: 048
     Dates: start: 20061102
  2. CALTRATE [Concomitant]
     Active Substance: CALCIUM CARBONATE
  3. PREMARIN [Concomitant]
     Active Substance: ESTROGENS, CONJUGATED
     Dosage: 0.9 MG, UNK
     Dates: start: 1990, end: 20030430
  4. FOSAMAX [Suspect]
     Active Substance: ALENDRONATE SODIUM
     Indication: OSTEOPOROSIS
     Dosage: UNK
     Route: 048
     Dates: start: 1995, end: 20010112
  5. FOSAMAX [Suspect]
     Active Substance: ALENDRONATE SODIUM
     Dosage: 70 MG, UNK
     Route: 048
     Dates: start: 20080721, end: 20090929
  6. FOSAMAX [Suspect]
     Active Substance: ALENDRONATE SODIUM
     Dosage: 70 MG, QW
     Route: 048
     Dates: start: 20010112, end: 20080421
  7. PREMARIN [Concomitant]
     Active Substance: ESTROGENS, CONJUGATED
     Dosage: 0.625 MG, UNK
     Dates: start: 20030430

REACTIONS (31)
  - Vaginal disorder [Unknown]
  - Periodontitis [Unknown]
  - Pain in extremity [Unknown]
  - Femur fracture [Recovered/Resolved]
  - Haemorrhoids [Unknown]
  - Rectal polyp [Unknown]
  - Bronchitis [Unknown]
  - Osteoarthritis [Unknown]
  - Gastritis [Unknown]
  - Bone pain [Unknown]
  - Fibrocystic breast disease [Unknown]
  - Dental necrosis [Unknown]
  - Hypertension [Unknown]
  - Back pain [Unknown]
  - Nodal osteoarthritis [Unknown]
  - Ligament sprain [Unknown]
  - Arthropathy [Unknown]
  - Low turnover osteopathy [Unknown]
  - Osteopenia [Unknown]
  - Tooth disorder [Unknown]
  - Resorption bone increased [Unknown]
  - Diverticulum [Unknown]
  - Apical granuloma [Unknown]
  - Blood cholesterol increased [Unknown]
  - Tooth fracture [Unknown]
  - Hypercalcaemia [Unknown]
  - Abdominal pain [Unknown]
  - Atrophic vulvovaginitis [Unknown]
  - Duodenitis [Unknown]
  - Pulpitis dental [Unknown]
  - Tenosynovitis [Unknown]

NARRATIVE: CASE EVENT DATE: 19970212
